FAERS Safety Report 15691788 (Version 4)
Quarter: 2019Q2

REPORT INFORMATION
  Report Type: Report from Study
  Country: JP (occurrence: JP)
  Receive Date: 20181205
  Receipt Date: 20190405
  Transmission Date: 20190711
  Serious: Yes (Hospitalization)
  Sender: FDA-Public Use
  Company Number: JP-ELI_LILLY_AND_COMPANY-JP201811014174

PATIENT
  Age: 65 Year
  Sex: Female

DRUGS (4)
  1. LOSARTAN POTASSIUM. [Concomitant]
     Active Substance: LOSARTAN POTASSIUM
     Dosage: UNK
  2. RIMATIL [Concomitant]
     Active Substance: BUCILLAMINE
     Dosage: UNK
  3. BARICITINIB [Suspect]
     Active Substance: BARICITINIB
     Indication: RHEUMATOID ARTHRITIS
     Dosage: 4 MG, DAILY
     Route: 048
     Dates: start: 20181031, end: 20181128
  4. BEPOTASTINE BESILATE [Concomitant]
     Active Substance: BEPOTASTINE BESILATE
     Dosage: UNK

REACTIONS (1)
  - Oesophageal squamous cell carcinoma stage I [Not Recovered/Not Resolved]

NARRATIVE: CASE EVENT DATE: 20181128
